FAERS Safety Report 7127860-8 (Version None)
Quarter: 2010Q4

REPORT INFORMATION
  Report Type: 
  Country: None (occurrence: None)
  Receive Date: 20101029
  Receipt Date: 20100728
  Transmission Date: 20110411
  Serious: No
  Sender: FDA-Public Use
  Company Number: US-003335

PATIENT
  Sex: Male
  Weight: 88.4514 kg

DRUGS (13)
  1. FIRMAGON [Suspect]
     Indication: PROSTATE CANCER
     Dosage: (80 MG 1X/MONTH SUBCUTANEOUS) ; (240 MG 1X SUBCUTANEOUS)
     Route: 058
     Dates: start: 20091101, end: 20091101
  2. FIRMAGON [Suspect]
     Indication: PROSTATE CANCER
     Dosage: (80 MG 1X/MONTH SUBCUTANEOUS) ; (240 MG 1X SUBCUTANEOUS)
     Route: 058
     Dates: start: 20091201
  3. VITAMIN D3 [Concomitant]
  4. PANCREATIN [Concomitant]
  5. SOY ISOFLAVONES [Concomitant]
  6. SELENIUM [Concomitant]
  7. ZINC [Concomitant]
  8. E VITAMIN [Concomitant]
  9. CALCIUM [Concomitant]
  10. C-VITAMIN [Concomitant]
  11. MAGNESIUM [Concomitant]
  12. LYCOPENE [Concomitant]
  13. COQ10 [Concomitant]

REACTIONS (2)
  - PROSTATIC SPECIFIC ANTIGEN INCREASED [None]
  - WEIGHT INCREASED [None]
